FAERS Safety Report 8131462-4 (Version None)
Quarter: 2012Q1

REPORT INFORMATION
  Report Type: 
  Country: None (occurrence: None)
  Receive Date: 20120208
  Receipt Date: 20120116
  Transmission Date: 20120608
  Serious: Yes (Death, Hospitalization)
  Sender: FDA-Public Use
  Company Number: 2011PROUSA00311

PATIENT
  Age: 74 Year
  Weight: 100.7 kg

DRUGS (18)
  1. MEGACE [Concomitant]
  2. GLUCAGON [Concomitant]
  3. POLYETHYLENE GLYCOL [Concomitant]
  4. ASPIRIN [Concomitant]
  5. FAT EMULSIONS (FATS NOS) [Concomitant]
  6. PROVENGE [Suspect]
     Indication: PROSTATE CANCER METASTATIC
     Dosage: 250 ML, SINGLE, INTRAVENOUS
     Route: 042
     Dates: start: 20110331, end: 20110331
  7. DEXTROSE 5% [Concomitant]
  8. BELLADONNA [Concomitant]
  9. TPN /06443901/ (AMINO ACIDS NOS, CARBOHYDRATES NOS, MINERALS NOS, VITA [Concomitant]
  10. DEXAMETHASONE [Concomitant]
  11. MORPHINE [Concomitant]
  12. ONDANSETRON [Concomitant]
  13. POTASSIUM CHLORIDE [Concomitant]
  14. OPIUM /00036301/ (MORPHINE) [Concomitant]
  15. INSULIN ASPART (INSULIN ASPART) [Concomitant]
  16. INSULIN DETEMIR (INSULIN DETEMIR) [Concomitant]
  17. OXYCODONE HCL [Concomitant]
  18. SOLIFENACIN SUCCINATE [Concomitant]

REACTIONS (6)
  - NEOPLASM PROGRESSION [None]
  - PROSTATE CANCER [None]
  - HYPOKALAEMIA [None]
  - MALNUTRITION [None]
  - HAEMOLYSIS [None]
  - URINARY TRACT INFECTION [None]
